FAERS Safety Report 7364728-6 (Version None)
Quarter: 2011Q1

REPORT INFORMATION
  Report Type: 
  Country: None (occurrence: None)
  Receive Date: 20110321
  Receipt Date: 20110224
  Transmission Date: 20110831
  Serious: No
  Sender: FDA-Public Use
  Company Number: US-B.I. PHARMACEUTICALS,INC./RIDGEFIELD-2011-BP-06780BP

PATIENT
  Sex: Male

DRUGS (3)
  1. CPAP [Concomitant]
     Indication: SLEEP APNOEA SYNDROME
  2. LIPITOR [Concomitant]
     Indication: BLOOD CHOLESTEROL INCREASED
  3. FLOMAX [Suspect]
     Indication: BENIGN PROSTATIC HYPERPLASIA
     Route: 048
     Dates: start: 20101101

REACTIONS (3)
  - SEMEN VOLUME INCREASED [None]
  - NOCTURIA [None]
  - WEIGHT INCREASED [None]
